FAERS Safety Report 16128863 (Version 1)
Quarter: 2019Q1

REPORT INFORMATION
  Report Type: Spontaneous
  Country: US (occurrence: US)
  Receive Date: 20190328
  Receipt Date: 20190328
  Transmission Date: 20190418
  Serious: No
  Sender: FDA-Public Use
  Company Number: US-MIKART, INC.-2064835

PATIENT
  Sex: Female

DRUGS (5)
  1. UNSPECIFIED HEART MEDICATION [Concomitant]
     Active Substance: UNSPECIFIED INGREDIENT
  2. SOMA [Concomitant]
     Active Substance: CARISOPRODOL
  3. IMITREX [Concomitant]
     Active Substance: SUMATRIPTAN SUCCINATE
  4. HYDROCODONE BITARTRATE AND ACETAMINOPHEN [Suspect]
     Active Substance: ACETAMINOPHEN\HYDROCODONE BITARTRATE
     Indication: NEURALGIA
     Route: 048
  5. ASPIRIN. [Concomitant]
     Active Substance: ASPIRIN

REACTIONS (1)
  - Drug ineffective [Unknown]
